FAERS Safety Report 5767282-5 (Version None)
Quarter: 2008Q2

REPORT INFORMATION
  Report Type: 
  Country: None (occurrence: None)
  Receive Date: 20080612
  Receipt Date: 20080602
  Transmission Date: 20081010
  Serious: Yes (Other)
  Sender: FDA-Public Use
  Company Number: ES-ELI_LILLY_AND_COMPANY-ES200806001124

PATIENT
  Age: 80 Year
  Sex: Female

DRUGS (4)
  1. FORTEO [Suspect]
     Indication: OSTEOPOROSIS
     Dosage: 20 UG, DAILY (1/D)
     Route: 058
     Dates: start: 20060201
  2. ARAVA [Concomitant]
     Indication: RHEUMATOID ARTHRITIS
     Dosage: 10 MG, DAILY (1/D)
     Route: 048
     Dates: start: 20070601
  3. DURAGESIC-100 [Concomitant]
     Indication: BACK PAIN
     Dosage: 50 MG, UNKNOWN
     Route: 062
     Dates: start: 20080101
  4. MOVALIS [Concomitant]
     Dosage: UNK, UNKNOWN
     Route: 048
     Dates: start: 20070601

REACTIONS (1)
  - ABSCESS JAW [None]
